FAERS Safety Report 4678360-6 (Version None)
Quarter: 2005Q2

REPORT INFORMATION
  Report Type: 
  Country: None (occurrence: None)
  Receive Date: 20050601
  Receipt Date: 20050525
  Transmission Date: 20051028
  Serious: Yes (Other)
  Sender: FDA-Public Use
  Company Number: PT-BRISTOL-MYERS SQUIBB COMPANY-12982112

PATIENT

DRUGS (4)
  1. ATAZANAVIR [Suspect]
  2. EFAVIRENZ [Suspect]
  3. TENOFOVIR [Suspect]
  4. RITONAVIR [Suspect]

REACTIONS (1)
  - ACUTE MYOCARDIAL INFARCTION [None]
